FAERS Safety Report 8062633-3 (Version None)
Quarter: 2012Q1

REPORT INFORMATION
  Report Type: 
  Country: None (occurrence: None)
  Receive Date: 20120118
  Receipt Date: 20111223
  Transmission Date: 20120608
  Serious: Yes (Hospitalization)
  Sender: FDA-Public Use
  Company Number: 906213

PATIENT
  Sex: Female

DRUGS (1)
  1. MONISTAT [Suspect]
     Indication: FUNGAL INFECTION
     Dosage: INSERTED VAGINALLY X 1
     Route: 067

REACTIONS (3)
  - BLISTER [None]
  - RASH [None]
  - APPLICATION SITE IRRITATION [None]
